FAERS Safety Report 4264516-3 (Version None)
Quarter: 2004Q1

REPORT INFORMATION
  Report Type: 
  Country: None (occurrence: None)
  Receive Date: 20040102
  Receipt Date: 20031219
  Transmission Date: 20041129
  Serious: Yes (Other)
  Sender: FDA-Public Use
  Company Number: 200329992BWH

PATIENT
  Age: 69 Year
  Sex: Male
  Weight: 79.8331 kg

DRUGS (5)
  1. LEVITRA [Suspect]
     Indication: ERECTILE DYSFUNCTION
     Dosage: 10 MG, ONCE, ORAL
     Route: 048
     Dates: start: 20031130
  2. ASACOL [Concomitant]
  3. ZETIA [Concomitant]
  4. WELCHOL [Concomitant]
  5. BIOTIN [Concomitant]

REACTIONS (5)
  - AMNESIA [None]
  - ANXIETY [None]
  - ERECTILE DYSFUNCTION [None]
  - HALLUCINATION [None]
  - SPONTANEOUS PENILE ERECTION [None]
